FAERS Safety Report 20624696 (Version 1)
Quarter: 2022Q1

REPORT INFORMATION
  Report Type: Spontaneous
  Country: US (occurrence: None)
  Receive Date: 20220323
  Receipt Date: 20220323
  Transmission Date: 20220423
  Serious: No
  Sender: FDA-Public Use
  Company Number: 2022A097177

PATIENT
  Age: 21504 Day
  Sex: Female
  Weight: 91.6 kg

DRUGS (4)
  1. BUDESONIDE\FORMOTEROL [Suspect]
     Active Substance: BUDESONIDE\FORMOTEROL
     Indication: Obstructive airways disorder
     Dosage: 160/4.5 , FREQUENCY UNKNOWN UNKNOWN
     Route: 055
     Dates: start: 2021
  2. ALBUTEROL [Concomitant]
     Active Substance: ALBUTEROL
     Route: 065
  3. GABAPENTIN [Concomitant]
     Active Substance: GABAPENTIN
     Route: 065
  4. TIZANIDINE [Concomitant]
     Active Substance: TIZANIDINE
     Route: 065

REACTIONS (16)
  - Malaise [Unknown]
  - Balance disorder [Unknown]
  - Vertigo [Unknown]
  - Tinnitus [Unknown]
  - Neck injury [Unknown]
  - Back injury [Unknown]
  - Neuropathy peripheral [Unknown]
  - Sensory loss [Unknown]
  - Fall [Unknown]
  - Muscular weakness [Unknown]
  - Fatigue [Unknown]
  - Pneumonia bacterial [Unknown]
  - COVID-19 [Unknown]
  - Asthma [Unknown]
  - Bronchitis [Unknown]
  - Breath sounds abnormal [Unknown]

NARRATIVE: CASE EVENT DATE: 20220124
